FAERS Safety Report 4576232-9 (Version None)
Quarter: 2005Q1

REPORT INFORMATION
  Report Type: 
  Country: None (occurrence: None)
  Receive Date: 20050119
  Receipt Date: 20041029
  Transmission Date: 20050727
  Serious: Yes (Hospitalization)
  Sender: FDA-Public Use
  Company Number: A03200403719

PATIENT
  Age: 78 Year
  Sex: Female
  Weight: 63.05 kg

DRUGS (9)
  1. PLAVIX [Suspect]
     Indication: ISCHAEMIC STROKE
     Dosage: 75 MG QD - ORAL
     Route: 048
     Dates: start: 20010101, end: 20030101
  2. PLAVIX [Suspect]
     Indication: MYOCARDIAL INFARCTION
     Dosage: 75 MG QD - ORAL
     Route: 048
     Dates: start: 20010101, end: 20030101
  3. ACETYLSALICYLIC ACID [Concomitant]
  4. DIGOXIN [Concomitant]
  5. GLIMEPIRIDE [Concomitant]
  6. LEVOTHYROXINE SODIUM [Concomitant]
  7. AMLODIPINE BESYLATE [Concomitant]
  8. METOPROLOL SUCCINATE [Concomitant]
  9. ALPRAZOLAM [Concomitant]

REACTIONS (3)
  - CEREBROVASCULAR ACCIDENT [None]
  - MYOCARDIAL INFARCTION [None]
  - RASH PRURITIC [None]
